FAERS Safety Report 5927758-4 (Version None)
Quarter: 2008Q4

REPORT INFORMATION
  Report Type: 
  Country: None (occurrence: None)
  Receive Date: 20081023
  Receipt Date: 20071022
  Transmission Date: 20090506
  Serious: No
  Sender: FDA-Public Use
  Company Number: US-ASTRAZENECA-2007UW24478

PATIENT
  Age: 55 Year
  Sex: Male
  Weight: 78.9 kg

DRUGS (8)
  1. MERREM [Suspect]
     Indication: LIVER ABSCESS
     Route: 042
     Dates: start: 20071018, end: 20071020
  2. VANCOMYCIN [Concomitant]
  3. CASPOFUNGIN [Concomitant]
  4. FLAGYL [Concomitant]
  5. CEFEPIME [Concomitant]
  6. DILAUDID [Concomitant]
  7. FENTANYL TRANSDERMAL SYSTEM [Concomitant]
  8. DIAZEPAM [Concomitant]

REACTIONS (2)
  - DISORIENTATION [None]
  - HYPERVIGILANCE [None]
